FAERS Safety Report 8320330-0 (Version None)
Quarter: 2012Q2

REPORT INFORMATION
  Report Type: 
  Country: None (occurrence: None)
  Receive Date: 20120430
  Receipt Date: 20120425
  Transmission Date: 20120825
  Serious: No
  Sender: FDA-Public Use
  Company Number: US-PFIZER INC-2012102836

PATIENT
  Sex: Female
  Weight: 63.49 kg

DRUGS (4)
  1. PRISTIQ [Suspect]
     Indication: ANXIETY
  2. ETHINYL ESTRADIOL/FERROUS FUMARATE/NORETHINDRONE ACETATE [Concomitant]
     Indication: CONTRACEPTION
     Dosage: UNK
  3. PRISTIQ [Suspect]
     Indication: DEPRESSION
     Dosage: 50 MG, 1X/DAY
     Route: 048
     Dates: start: 20120301, end: 20120422
  4. PREVACID [Concomitant]
     Indication: GASTROOESOPHAGEAL REFLUX DISEASE
     Dosage: UNK

REACTIONS (3)
  - ASTHENIA [None]
  - GASTROENTERITIS VIRAL [None]
  - NAUSEA [None]
